FAERS Safety Report 22155201 (Version 5)
Quarter: 2023Q4

REPORT INFORMATION
  Report Type: Spontaneous
  Country: CA (occurrence: CA)
  Receive Date: 20230330
  Receipt Date: 20231111
  Transmission Date: 20240110
  Serious: Yes (Other)
  Sender: FDA-Public Use
  Company Number: CA-CELLTRION INC.-2023CA002559

PATIENT

DRUGS (14)
  1. INFLECTRA [Suspect]
     Active Substance: INFLIXIMAB-DYYB
     Indication: Crohn^s disease
     Dosage: 5 MG/KG, W0, W2,W6 AND EVERY 8 WEEKS
     Route: 042
     Dates: start: 20221213
  2. INFLECTRA [Suspect]
     Active Substance: INFLIXIMAB-DYYB
     Dosage: 5 MG/KG, W0, W2,W6 AND EVERY 8 WEEKS
     Route: 042
     Dates: start: 20221213
  3. INFLECTRA [Suspect]
     Active Substance: INFLIXIMAB-DYYB
     Dosage: 5 MG/KG, 320MG (5MG/KG), 6 WEEKS SINCE LAST INFUSION
     Route: 042
     Dates: start: 20230125
  4. INFLECTRA [Suspect]
     Active Substance: INFLIXIMAB-DYYB
     Dosage: 5 MG/KG, 320MG (5MG/KG), 6 WEEKS SINCE LAST INFUSION
     Route: 042
     Dates: start: 20230125
  5. INFLECTRA [Suspect]
     Active Substance: INFLIXIMAB-DYYB
     Dosage: 295 MG, EVERY 8 WEEKS
     Route: 042
     Dates: start: 20230322
  6. INFLECTRA [Suspect]
     Active Substance: INFLIXIMAB-DYYB
     Dosage: 5 MG/KG, EVERY 8 WEEKS
     Route: 042
     Dates: start: 20230516
  7. INFLECTRA [Suspect]
     Active Substance: INFLIXIMAB-DYYB
     Dosage: 10 MG/KG, EVERY 6  WEEKS
     Route: 042
     Dates: start: 20230629
  8. INFLECTRA [Suspect]
     Active Substance: INFLIXIMAB-DYYB
     Dosage: 10 MG/KG, EVERY 6  WEEKS
     Route: 042
     Dates: start: 20230810
  9. INFLECTRA [Suspect]
     Active Substance: INFLIXIMAB-DYYB
     Dosage: 10 MG/KG (600 MG), EVERY 6  WEEKS
     Route: 042
     Dates: start: 20230921
  10. INFLECTRA [Suspect]
     Active Substance: INFLIXIMAB-DYYB
     Dosage: 670 MG (10 MG/KG), EVERY 6  WEEKS
     Route: 042
     Dates: start: 20231102
  11. PREDNISONE [Concomitant]
     Active Substance: PREDNISONE
     Dosage: 10 MG, FREQUENCY UNKNOWN
     Route: 048
     Dates: start: 20221129, end: 20221213
  12. PREDNISONE [Concomitant]
     Active Substance: PREDNISONE
     Dosage: 5 MG, FREQUENCY UNKNOWN
     Route: 048
     Dates: start: 20221214, end: 20230103
  13. PREDNISONE [Concomitant]
     Active Substance: PREDNISONE
     Dosage: 15 MG, FREQUENCY UNKNOWN
     Route: 048
     Dates: start: 20230104
  14. PREDNISONE [Concomitant]
     Active Substance: PREDNISONE
     Dosage: 40 MG
     Route: 048
     Dates: start: 20230306

REACTIONS (10)
  - Condition aggravated [Recovering/Resolving]
  - General physical health deterioration [Unknown]
  - Weight decreased [Unknown]
  - Drug level below therapeutic [Unknown]
  - Weight increased [Unknown]
  - Body temperature decreased [Not Recovered/Not Resolved]
  - Off label use [Unknown]
  - Off label use [Unknown]
  - Intentional product use issue [Unknown]
  - Inappropriate schedule of product administration [Unknown]

NARRATIVE: CASE EVENT DATE: 20230101
